FAERS Safety Report 9191009 (Version 2)
Quarter: 2013Q2

REPORT INFORMATION
  Report Type: Report from Study
  Country: FR (occurrence: FR)
  Receive Date: 20130326
  Receipt Date: 20130509
  Transmission Date: 20140414
  Serious: Yes (Hospitalization, Other)
  Sender: FDA-Public Use
  Company Number: FR-ROCHE-1202476

PATIENT
  Age: 68 Year
  Sex: Female
  Weight: 67 kg

DRUGS (10)
  1. VISMODEGIB [Suspect]
     Indication: LYMPHOCYTIC LEUKAEMIA
     Dosage: LAST DOSE PRIOR TO SAE 11/MAR/2013
     Route: 065
     Dates: start: 20130308
  2. EUCREAS [Concomitant]
     Route: 065
     Dates: end: 20130311
  3. AMAREL [Concomitant]
     Route: 065
     Dates: end: 20130313
  4. CLAFORAN [Concomitant]
     Route: 065
  5. ZELITREX [Concomitant]
     Route: 065
  6. PLITICAN [Concomitant]
  7. PARACETAMOL [Concomitant]
     Route: 065
  8. SODIUM CHLORIDE [Concomitant]
     Route: 065
  9. VILDAGLIPTIN [Concomitant]
  10. GLIMEPIRIDE [Concomitant]

REACTIONS (1)
  - Hypoglycaemia [Recovered/Resolved]
